FAERS Safety Report 6818286-2 (Version None)
Quarter: 2010Q3

REPORT INFORMATION
  Report Type: 
  Country: None (occurrence: None)
  Receive Date: 20100706
  Receipt Date: 20071010
  Transmission Date: 20110219
  Serious: Yes (Hospitalization)
  Sender: FDA-Public Use
  Company Number: US-PFIZER INC-2007049268

PATIENT
  Sex: Female

DRUGS (3)
  1. ZITHROMAX [Suspect]
     Indication: PNEUMONIA
     Dosage: 2 1/2 TEASPOONSFULL
     Route: 048
     Dates: start: 20050615, end: 20050615
  2. ZITHROMAX [Suspect]
     Indication: PYREXIA
     Dosage: 1 1/4 TEASPOONSFUL
     Route: 048
     Dates: start: 20050616, end: 20050618
  3. ANTITUSSIVES, EXCL COMBINATIONS WITH EXPECTOR [Concomitant]
     Dates: start: 20050601, end: 20050601

REACTIONS (1)
  - TOXIC EPIDERMAL NECROLYSIS [None]
